FAERS Safety Report 9642449 (Version 2)
Quarter: 2013Q4

REPORT INFORMATION
  Report Type: Report from Study
  Country: FR (occurrence: FR)
  Receive Date: 20131024
  Receipt Date: 20131101
  Transmission Date: 20140711
  Serious: Yes (Death, Life-Threatening, Hospitalization)
  Sender: FDA-Public Use
  Company Number: FR-BRISTOL-MYERS SQUIBB COMPANY-19588516

PATIENT
  Age: 60 Year
  Sex: Female

DRUGS (7)
  1. PACLITAXEL [Suspect]
     Indication: METASTASES TO PERITONEUM
     Dosage: 130MG; LAST DOSE: 23SEP2013
     Route: 042
     Dates: start: 20130909, end: 20130923
  2. MACROGOL [Concomitant]
  3. SEROPLEX [Concomitant]
  4. DOLIPRANE [Concomitant]
  5. SPASFON [Concomitant]
  6. OXYCODONE [Concomitant]
  7. XANAX [Concomitant]

REACTIONS (1)
  - Gastrointestinal perforation [Fatal]
